FAERS Safety Report 7611648-5 (Version None)
Quarter: 2011Q3

REPORT INFORMATION
  Report Type: 
  Country: None (occurrence: None)
  Receive Date: 20110715
  Receipt Date: 20110712
  Transmission Date: 20111222
  Serious: Yes (Other)
  Sender: FDA-Public Use
  Company Number: NL-ACTELION-A-CH2010-41076

PATIENT
  Sex: Female
  Weight: 54 kg

DRUGS (3)
  1. TRACLEER [Suspect]
     Dosage: UNK
     Route: 048
     Dates: start: 20110501, end: 20110601
  2. TRACLEER [Suspect]
     Dosage: UNK
     Route: 048
     Dates: start: 20101016
  3. TRACLEER [Suspect]
     Indication: SKIN ULCER
     Dosage: 62.5 MG, UNK
     Route: 048
     Dates: start: 20110601, end: 20110627

REACTIONS (2)
  - PANCYTOPENIA [None]
  - LEUKOPENIA [None]
